FAERS Safety Report 8206111-7 (Version None)
Quarter: 2012Q1

REPORT INFORMATION
  Report Type: 
  Country: None (occurrence: None)
  Receive Date: 20120313
  Receipt Date: 20120307
  Transmission Date: 20120608
  Serious: Yes (Hospitalization)
  Sender: FDA-Public Use
  Company Number: FR-ABBOTT-12P-056-0913208-00

PATIENT
  Age: 84 Year
  Sex: Female

DRUGS (4)
  1. DEPAKENE [Suspect]
     Indication: EPILEPSY
     Route: 048
     Dates: end: 20120121
  2. OXAZEPAM [Concomitant]
     Indication: PRODUCT USED FOR UNKNOWN INDICATION
  3. DEPAKENE [Interacting]
     Route: 048
     Dates: start: 20120121
  4. LORAZEPAM [Interacting]
     Indication: PRODUCT USED FOR UNKNOWN INDICATION
     Dosage: DAILY
     Route: 048
     Dates: end: 20120121

REACTIONS (6)
  - SOMNOLENCE [None]
  - DRUG INTERACTION [None]
  - DIZZINESS [None]
  - ORTHOSTATIC HYPOTENSION [None]
  - CONFUSIONAL STATE [None]
  - FALL [None]
